FAERS Safety Report 20658784 (Version 1)
Quarter: 2022Q1

REPORT INFORMATION
  Report Type: Spontaneous
  Country: US (occurrence: US)
  Receive Date: 20220331
  Receipt Date: 20220331
  Transmission Date: 20220423
  Serious: No
  Sender: FDA-Public Use
  Company Number: US-SA-SAC20220330000360

PATIENT
  Age: 58 Year
  Sex: Female

DRUGS (15)
  1. DUPIXENT [Suspect]
     Active Substance: DUPILUMAB
     Indication: Asthma
     Dosage: 300 MG, QOW
     Route: 058
     Dates: start: 20201110
  2. VITAMIN B1 [Concomitant]
     Active Substance: THIAMINE HYDROCHLORIDE
  3. INTRINSIC FACTOR [Concomitant]
     Active Substance: INTRINSIC FACTOR
  4. ALBUTEROL [Concomitant]
     Active Substance: ALBUTEROL
     Indication: Asthma
     Dosage: 2MG
  5. CETIRIZINE [Concomitant]
     Active Substance: CETIRIZINE HYDROCHLORIDE
  6. DONEPEZIL [Concomitant]
     Active Substance: DONEPEZIL
     Dosage: 23MG
  7. IBUPROFEN [Concomitant]
     Active Substance: IBUPROFEN
     Dosage: 100 MG/5 ML, SUSPENSION
  8. OMEPRAZOLE [Concomitant]
     Active Substance: OMEPRAZOLE
     Dosage: 20 MG
  9. PERCOCET [Concomitant]
     Active Substance: ACETAMINOPHEN\OXYCODONE HYDROCHLORIDE
     Dosage: 325 MG
  10. SIMETHICONE (DIMETHICONE) [Concomitant]
     Active Substance: DIMETHICONE
     Dosage: 80MG
  11. VENTOLIN HFA [Concomitant]
     Active Substance: ALBUTEROL SULFATE
  12. MAGNESIUM [Concomitant]
     Active Substance: MAGNESIUM
     Dosage: 250 MG
  13. ALBUTEROL SULFATE [Concomitant]
     Active Substance: ALBUTEROL SULFATE
  14. FLONASE ALLERGY RELIEF [Concomitant]
     Active Substance: FLUTICASONE PROPIONATE
     Dosage: 50 UG,SPRAY
  15. BEVESPI AEROSPHERE [Concomitant]
     Active Substance: FORMOTEROL FUMARATE\GLYCOPYRROLATE
     Dosage: 9-4.8MCG

REACTIONS (2)
  - Impaired quality of life [Unknown]
  - Product use issue [Unknown]

NARRATIVE: CASE EVENT DATE: 20201110
